FAERS Safety Report 15336015 (Version 2)
Quarter: 2018Q3

REPORT INFORMATION
  Report Type: Spontaneous
  Country: US (occurrence: US)
  Receive Date: 20180830
  Receipt Date: 20180904
  Transmission Date: 20181010
  Serious: No
  Sender: FDA-Public Use
  Company Number: US-PFIZER INC-2018345902

PATIENT
  Age: 65 Year
  Sex: Male
  Weight: 77.98 kg

DRUGS (3)
  1. GABAPENTIN. [Suspect]
     Active Substance: GABAPENTIN
     Dosage: 600 MG, DAILY (300MG CAPSULE IN THE MORNING AND ONE 300MG CAPSULE AT NIGHT)
     Route: 048
  2. GABAPENTIN. [Suspect]
     Active Substance: GABAPENTIN
     Indication: NERVE COMPRESSION
     Dosage: 300 MG, UNK
  3. GABAPENTIN. [Suspect]
     Active Substance: GABAPENTIN
     Dosage: 300 MG, DAILY

REACTIONS (2)
  - Product use in unapproved indication [Unknown]
  - Erectile dysfunction [Recovering/Resolving]

NARRATIVE: CASE EVENT DATE: 2018
